FAERS Safety Report 7430908-4 (Version None)
Quarter: 2011Q2

REPORT INFORMATION
  Report Type: 
  Country: None (occurrence: None)
  Receive Date: 20110419
  Receipt Date: 20110419
  Transmission Date: 20111010
  Serious: No
  Sender: FDA-Public Use
  Company Number: None

PATIENT
  Sex: Male

DRUGS (1)
  1. AFINITOR 10MG NOVARTIS [Suspect]
     Dosage: 10MG ONCE DAILY BY MOUTH
     Route: 048
     Dates: start: 20100201

REACTIONS (2)
  - FRACTURE [None]
  - ARTHRALGIA [None]
